FAERS Safety Report 6262885-6 (Version None)
Quarter: 2009Q3

REPORT INFORMATION
  Report Type: 
  Country: None (occurrence: None)
  Receive Date: 20090709
  Receipt Date: 20090630
  Transmission Date: 20100115
  Serious: Yes (Other)
  Sender: FDA-Public Use
  Company Number: DE-ABBOTT-09P-062-0582688-00

PATIENT
  Age: 39 Year
  Sex: Female

DRUGS (2)
  1. VALPROIC ACID [Suspect]
     Indication: EPILEPSY
     Dosage: 1500MG DAILY
     Route: 048
     Dates: start: 20080101
  2. VALPROIC ACID [Suspect]

REACTIONS (1)
  - OSTEONECROSIS [None]
